FAERS Safety Report 23281878 (Version 1)
Quarter: 2023Q4

REPORT INFORMATION
  Report Type: Spontaneous
  Country: JP (occurrence: JP)
  Receive Date: 20231211
  Receipt Date: 20231211
  Transmission Date: 20240110
  Serious: Yes (Death, Other)
  Sender: FDA-Public Use
  Company Number: JP-ABBVIE-5532524

PATIENT

DRUGS (1)
  1. VENCLEXTA [Suspect]
     Active Substance: VENETOCLAX
     Indication: Non-Hodgkin^s lymphoma
     Route: 048

REACTIONS (7)
  - Neoplasm [Fatal]
  - Therapy cessation [Unknown]
  - Myelodysplastic syndrome [Unknown]
  - Sepsis [Fatal]
  - Dementia [Unknown]
  - Acute myeloid leukaemia [Unknown]
  - Off label use [Unknown]
